FAERS Safety Report 5529904-3 (Version None)
Quarter: 2007Q4

REPORT INFORMATION
  Report Type: 
  Country: None (occurrence: None)
  Receive Date: 20071129
  Receipt Date: 20071122
  Transmission Date: 20080405
  Serious: Yes (Hospitalization)
  Sender: FDA-Public Use
  Company Number: JP-BOEHRINGER INGELHEIM PHARMACEUTICALS, INC.-2007-BP-25091NB

PATIENT
  Age: 8 Decade
  Sex: Female

DRUGS (3)
  1. PRAMIPEXOLE DIHYDROCHLORIDE [Suspect]
     Indication: PARKINSON'S DISEASE
  2. SELEGILINE HCL [Suspect]
     Indication: PARKINSON'S DISEASE
  3. MADOPAR [Concomitant]
     Indication: PARKINSON'S DISEASE

REACTIONS (1)
  - BLOOD PRESSURE INCREASED [None]
